FAERS Safety Report 4385027-0 (Version None)
Quarter: 2004Q2

REPORT INFORMATION
  Report Type: 
  Country: None (occurrence: None)
  Receive Date: 20040625
  Receipt Date: 20021218
  Transmission Date: 20050107
  Serious: Yes (Hospitalization)
  Sender: FDA-Public Use
  Company Number: SE-GLAXOSMITHKLINE-B0288389A

PATIENT
  Age: 67 Year
  Sex: Female

DRUGS (10)
  1. CEFUROXIME [Suspect]
  2. ALLOPURINOL [Suspect]
     Indication: ILL-DEFINED DISORDER
     Dosage: 100MG PER DAY
     Route: 048
     Dates: start: 20020920, end: 20020924
  3. TRUXAL [Concomitant]
     Dosage: 50MG UNKNOWN
     Route: 065
  4. SALURES [Concomitant]
     Dosage: 5MG UNKNOWN
     Route: 065
  5. SODIUM BICARBONATE [Concomitant]
     Dosage: 1G UNKNOWN
  6. BISOLVON [Concomitant]
     Dosage: 8MG UNKNOWN
     Route: 065
  7. LOMUDAL [Concomitant]
     Dosage: 10MG UNKNOWN
  8. NORVASC [Concomitant]
     Dosage: 10MG UNKNOWN
     Route: 065
  9. LOSEC [Concomitant]
     Dosage: 20MG UNKNOWN
     Route: 065
  10. SYMBICORT [Concomitant]
     Route: 065

REACTIONS (6)
  - BLOOD URIC ACID INCREASED [None]
  - CARCINOMA [None]
  - GOUTY ARTHRITIS [None]
  - HEPATIC ENZYME INCREASED [None]
  - PAIN IN EXTREMITY [None]
  - PYREXIA [None]
